FAERS Safety Report 8372481-2 (Version None)
Quarter: 2012Q2

REPORT INFORMATION
  Report Type: 
  Country: None (occurrence: None)
  Receive Date: 20120521
  Receipt Date: 20120509
  Transmission Date: 20120825
  Serious: Yes (Disabling)
  Sender: FDA-Public Use
  Company Number: US-JNJFOC-20110603051

PATIENT
  Sex: Male
  Weight: 34.9 kg

DRUGS (8)
  1. MULTI-VITAMINS [Concomitant]
  2. REMICADE [Suspect]
     Route: 042
     Dates: start: 20110511
  3. REMICADE [Suspect]
     Route: 042
     Dates: start: 20110525
  4. MESALAMINE [Concomitant]
     Indication: CROHN'S DISEASE
  5. AZATHIOPRINE [Concomitant]
     Indication: CROHN'S DISEASE
  6. VITAMIN D [Concomitant]
  7. REMICADE [Suspect]
     Indication: CROHN'S DISEASE
     Route: 042
  8. REMICADE [Suspect]
     Route: 042
     Dates: start: 20080611, end: 20080814

REACTIONS (1)
  - CROHN'S DISEASE [None]
